FAERS Safety Report 9961504 (Version 4)
Quarter: 2014Q3

REPORT INFORMATION
  Report Type: Spontaneous
  Country: US (occurrence: US)
  Receive Date: 20140305
  Receipt Date: 20140829
  Transmission Date: 20150326
  Serious: Yes (Hospitalization, Other)
  Sender: FDA-Public Use
  Company Number: US-009507513-1103USA00268

PATIENT
  Sex: Female
  Weight: 65.32 kg

DRUGS (8)
  1. CALCIUM (UNSPECIFIED) (+) VITAMIN D (UNSPECIFIED) [Concomitant]
     Active Substance: CALCIUM CARBONATE\VITAMIN D
     Dates: start: 1995
  2. MK-9359 [Concomitant]
     Indication: HYPERTENSION
     Dates: start: 1997
  3. FOSAMAX [Suspect]
     Active Substance: ALENDRONATE SODIUM
     Indication: OSTEOPOROSIS PROPHYLAXIS
     Dosage: 10 MG, QD
     Route: 048
     Dates: start: 20090319, end: 2009
  4. FOSAMAX [Suspect]
     Active Substance: ALENDRONATE SODIUM
     Indication: OSTEOPOROSIS PROPHYLAXIS
     Dosage: 10 MG, QD
     Route: 048
     Dates: start: 1996, end: 20090328
  5. FOSAMAX [Suspect]
     Active Substance: ALENDRONATE SODIUM
     Dosage: 10 MG, QD
     Route: 048
     Dates: end: 2009
  6. FOSAMAX [Suspect]
     Active Substance: ALENDRONATE SODIUM
     Indication: OSTEOPOROSIS
  7. MK-0152 [Concomitant]
     Active Substance: HYDROCHLOROTHIAZIDE
     Dates: start: 1997
  8. FOSAMAX [Suspect]
     Active Substance: ALENDRONATE SODIUM
     Indication: OSTEOPOROSIS
     Dosage: 70 MG, UNK
     Route: 048
     Dates: start: 20030701, end: 20040227

REACTIONS (89)
  - Coronary artery disease [Unknown]
  - Dehydration [Unknown]
  - Incisional hernia [Unknown]
  - Impaired healing [Unknown]
  - Nodule [Unknown]
  - Hypertension [Unknown]
  - Aortic valve disease [Unknown]
  - Blood pressure inadequately controlled [Unknown]
  - Peripheral coldness [Unknown]
  - Tooth disorder [Unknown]
  - Vascular calcification [Unknown]
  - Spinal column stenosis [Unknown]
  - Cardiac murmur [Unknown]
  - Wrist fracture [Unknown]
  - Back pain [Unknown]
  - Diarrhoea [Unknown]
  - Supraventricular extrasystoles [Unknown]
  - Surgery [Unknown]
  - Diverticulitis [Unknown]
  - Hypertension [Unknown]
  - Urine odour abnormal [Unknown]
  - Adverse drug reaction [Unknown]
  - Fall [Unknown]
  - Muscle strain [Unknown]
  - Cardiac disorder [Unknown]
  - Arthralgia [Not Recovered/Not Resolved]
  - Pain in extremity [Unknown]
  - Joint swelling [Unknown]
  - Diarrhoea [Unknown]
  - Osteoarthritis [Unknown]
  - Fracture nonunion [Recovering/Resolving]
  - Peripheral vascular disorder [Not Recovered/Not Resolved]
  - Type 1 diabetes mellitus [Not Recovered/Not Resolved]
  - Fall [Unknown]
  - Drug intolerance [Unknown]
  - Cardiomegaly [Unknown]
  - Myalgia [Unknown]
  - Pain in extremity [Unknown]
  - Gastrointestinal disorder [Unknown]
  - Osteoarthritis [Unknown]
  - Eye disorder [Not Recovered/Not Resolved]
  - Spinal osteoarthritis [Unknown]
  - Fall [Unknown]
  - Chondrocalcinosis [Unknown]
  - Poor peripheral circulation [Unknown]
  - Sciatica [Unknown]
  - Drug hypersensitivity [Unknown]
  - Atrial fibrillation [Recovered/Resolved]
  - Pulmonary mass [Unknown]
  - Gastrointestinal disorder [Unknown]
  - Tooth disorder [Unknown]
  - Muscular weakness [Unknown]
  - Anxiety [Unknown]
  - Dyspnoea [Unknown]
  - Fibroadenoma of breast [Unknown]
  - Cough [Unknown]
  - Adverse drug reaction [Unknown]
  - Femur fracture [Unknown]
  - Appendix disorder [Unknown]
  - Tachyarrhythmia [Recovered/Resolved]
  - Hypercholesterolaemia [Not Recovered/Not Resolved]
  - Diverticulum [Unknown]
  - Carotid artery occlusion [Unknown]
  - Benign neoplasm [Unknown]
  - Sciatica [Recovered/Resolved]
  - Gait disturbance [Unknown]
  - Aortic stenosis [Unknown]
  - Carotid artery stenosis [Unknown]
  - Rheumatoid arthritis [Unknown]
  - Balance disorder [Unknown]
  - Malaise [Unknown]
  - Arthritis [Unknown]
  - Cerumen impaction [Unknown]
  - Chondrocalcinosis pyrophosphate [Unknown]
  - Fibrocystic breast disease [Unknown]
  - Breast calcifications [Unknown]
  - Pulmonary hypertension [Unknown]
  - Blood sodium decreased [Unknown]
  - Tooth extraction [Unknown]
  - Fatigue [Unknown]
  - Electrocardiogram ST-T change [Unknown]
  - Incisional hernia [Unknown]
  - Renal failure chronic [Not Recovered/Not Resolved]
  - Cataract [Unknown]
  - Tendonitis [Unknown]
  - Adverse drug reaction [Unknown]
  - Sinus disorder [Unknown]
  - Arteriosclerosis [Unknown]
  - Osteoarthritis [Unknown]

NARRATIVE: CASE EVENT DATE: 1997
